FAERS Safety Report 17205020 (Version 3)
Quarter: 2020Q1

REPORT INFORMATION
  Report Type: Spontaneous
  Country: FR (occurrence: FR)
  Receive Date: 20191227
  Receipt Date: 20200217
  Transmission Date: 20200409
  Serious: Yes (Other)
  Sender: FDA-Public Use
  Company Number: FR-TEVA-2019-FR-1157567

PATIENT
  Age: 55 Year
  Sex: Male
  Weight: 66 kg

DRUGS (8)
  1. GEMCITABINE HYDROCHLORIDE. [Suspect]
     Active Substance: GEMCITABINE HYDROCHLORIDE
     Indication: T-CELL LYMPHOMA
     Route: 041
     Dates: start: 20191008, end: 20191008
  2. ADCETRIS [Suspect]
     Active Substance: BRENTUXIMAB VEDOTIN
     Indication: T-CELL LYMPHOMA
     Dosage: UNKNOWN
     Route: 041
     Dates: start: 20191008, end: 20191008
  3. PRIMPERAN 10 MG, COMPRIME SECABLE [Concomitant]
     Dosage: 1 DOSAGE FORMS DAILY;
     Route: 048
  4. LANSOPRAZOLE. [Suspect]
     Active Substance: LANSOPRAZOLE
     Indication: PROPHYLAXIS AGAINST GASTROINTESTINAL ULCER
     Dosage: 15 MG PER DAY
     Route: 048
     Dates: end: 20191028
  5. SULFAMETHOXAZOLE/TRIMETHOPRIM [Suspect]
     Active Substance: SULFAMETHOXAZOLE\TRIMETHOPRIM
     Indication: PROPHYLAXIS
     Dosage: 3 DOSAGE FORMS, WEEKLY
     Route: 048
     Dates: end: 20191028
  6. PRIMPERAN 10 MG, COMPRIME SECABLE [Concomitant]
     Indication: NAUSEA
     Dosage: 1 DOSAGE FORMS DAILY;
     Route: 048
  7. SPASFON, COMPRIME ENROBE [Concomitant]
     Active Substance: PHLOROGLUCINOL\1,3,5-TRIMETHOXYBENZENE
     Indication: ABDOMINAL PAIN
     Dosage: 1 DOSAGE FORMS
     Route: 048
  8. ZELITREX 500 MG, COMPRIME ENROBE [Concomitant]
     Active Substance: VALACYCLOVIR HYDROCHLORIDE
     Indication: PROPHYLAXIS
     Dosage: 2 DOSAGE FORMS PER DAY
     Route: 048
     Dates: end: 20191028

REACTIONS (1)
  - Hepatocellular injury [Recovering/Resolving]

NARRATIVE: CASE EVENT DATE: 20191021
